FAERS Safety Report 11434732 (Version 2)
Quarter: 2015Q3

REPORT INFORMATION
  Report Type: Spontaneous
  Country: DE (occurrence: DE)
  Receive Date: 20150831
  Receipt Date: 20150928
  Transmission Date: 20151125
  Serious: Yes (Life-Threatening, Hospitalization, Other)
  Sender: FDA-Public Use
  Company Number: DE-PFIZER INC-2015281249

PATIENT
  Sex: Female
  Weight: 59 kg

DRUGS (29)
  1. LEUCOVORIN. [Suspect]
     Active Substance: LEUCOVORIN
     Indication: RECTAL ADENOCARCINOMA
     Dosage: 2 CYCLES
     Dates: start: 201010
  2. LEUCOVORIN. [Suspect]
     Active Substance: LEUCOVORIN
     Dosage: 5TH CYCLE MAINTENANCE TREATMENT 5-FU / LEUCOVORIN (50% OF THE DOSE)
     Dates: start: 201501
  3. LEUCOVORIN. [Suspect]
     Active Substance: LEUCOVORIN
     Dosage: 6TH TO 8TH CYCLE MAINTENANCE TREATMENT 5-FU / LEUCOVORIN (75% OF THE DOSE
     Dates: start: 201502, end: 201503
  4. 5-FU [Suspect]
     Active Substance: FLUOROURACIL
     Dosage: 12 CYCLES FOLFOX (75% DOSE) IN COMBINATION WITH AVASTIN SINCE D. 5.
     Dates: start: 201402, end: 201408
  5. 5-FU [Suspect]
     Active Substance: FLUOROURACIL
     Dosage: 6TH TO 8TH CYCLE MAINTENANCE TREATMENT 5-FU / LEUCOVORIN (75% OF THE DOSE)
     Dates: start: 201502, end: 201503
  6. 5-FU [Suspect]
     Active Substance: FLUOROURACIL
     Dosage: 9TH-10TH CYCLE MAINTENANCE TREATMENT 5-FU / LEUCOVORIN (50% OF THE DOSE
     Dates: start: 201505, end: 201506
  7. IDEOS [Concomitant]
     Active Substance: CALCIUM CARBONATE\CHOLECALCIFEROL
     Dosage: 1 DF, 1X/DAY (IN THE MORNING)
     Route: 048
  8. OXALIPLATIN. [Suspect]
     Active Substance: OXALIPLATIN
     Dosage: CYCLE 5
     Dates: start: 20091013
  9. OXALIPLATIN. [Suspect]
     Active Substance: OXALIPLATIN
     Dosage: 12 CYCLES FOLFOX (75% DOSE) IN COMBINATION WITH AVASTIN SINCE D. 5.
     Dates: start: 201402, end: 201408
  10. PANTOZOL [Concomitant]
     Active Substance: PANTOPRAZOLE SODIUM
     Dosage: 40 MG, 1X/DAY (IN THE EVENING)
     Route: 048
  11. IRINOTECAN HCL [Suspect]
     Active Substance: IRINOTECAN HYDROCHLORIDE
     Dosage: CYCLE 5
     Dates: start: 20091013
  12. 5-FU [Suspect]
     Active Substance: FLUOROURACIL
     Indication: RECTAL ADENOCARCINOMA
     Dosage: 4 CYCLES
     Dates: start: 200907, end: 200908
  13. 5-FU [Suspect]
     Active Substance: FLUOROURACIL
     Dosage: 2 CYCLES
     Dates: start: 201010
  14. 5-FU [Suspect]
     Active Substance: FLUOROURACIL
     Dosage: 5TH CYCLE MAINTENANCE TREATMENT 5-FU / LEUCOVORIN (50% OF THE DOSE)
     Dates: start: 20150114
  15. AVASTIN [Suspect]
     Active Substance: BEVACIZUMAB
     Indication: RECTAL ADENOCARCINOMA
     Dosage: 12 CYCLES FOLFOX (75% DOSE) IN COMBINATION WITH AVASTIN SINCE D. 5.
     Dates: start: 2014, end: 201408
  16. ACICLOVIR [Concomitant]
     Active Substance: ACYCLOVIR
     Dosage: 400 MG, 2X/DAY (400 MG IN THE MORNING AND 400 MG IN THE EVENING)
     Route: 048
  17. IRINOTECAN HCL [Suspect]
     Active Substance: IRINOTECAN HYDROCHLORIDE
     Indication: RECTAL ADENOCARCINOMA
     Dosage: 4 CYCLES
     Dates: start: 200907, end: 200908
  18. LEUCOVORIN. [Suspect]
     Active Substance: LEUCOVORIN
     Dosage: 4 CYCLES MAINTENANCE TREATMENT 5-FU / LEUCOVORIN (50% OF THE DOSE)
     Dates: start: 201410, end: 201412
  19. LEUCOVORIN. [Suspect]
     Active Substance: LEUCOVORIN
     Dosage: 9TH-10TH CYCLE MAINTENANCE TREATMENT 5-FU / LEUCOVORIN (50% OF THE DOSE)
     Dates: start: 201505, end: 201506
  20. 5-FU [Suspect]
     Active Substance: FLUOROURACIL
     Dosage: CYCLE 5
     Dates: start: 20091013
  21. OXALIPLATIN. [Suspect]
     Active Substance: OXALIPLATIN
     Indication: RECTAL ADENOCARCINOMA
     Dosage: 4 CYCLES
     Dates: start: 200907, end: 200908
  22. AMPHOMORONAL [Concomitant]
     Dosage: 1 ML, 4X/DAY (1 IML IN THE MORNING, 1ML IN THE NOON, 1 ML IN THE EVENING, 1 ML IN THE NIGHT)
     Route: 048
  23. 5-FU [Suspect]
     Active Substance: FLUOROURACIL
     Dosage: 4 CYCLES MAINTENANCE TREATMENT 5-FU / LEUCOVORIN (50% OF THE DOSE)
     Dates: start: 201410, end: 201412
  24. FOLIC ACID. [Suspect]
     Active Substance: FOLIC ACID
     Indication: RECTAL ADENOCARCINOMA
     Dosage: 4 CYCLES
     Dates: start: 200907, end: 200908
  25. OXALIPLATIN. [Suspect]
     Active Substance: OXALIPLATIN
     Dosage: 2 CYCLES
     Dates: start: 201010
  26. COTRIM D.S. [Concomitant]
     Active Substance: SULFAMETHOXAZOLE\TRIMETHOPRIM
     Dosage: 960 MG, 2X/DAY (960 MG IN THE MORNING AND 960 MG IN THE EVENING)
     Route: 048
  27. XGEVA [Concomitant]
     Active Substance: DENOSUMAB
     Dosage: 120 MG, CYCLIC (EVERY 4 WEEKS)
     Route: 058
  28. LEUCOVORIN. [Suspect]
     Active Substance: LEUCOVORIN
     Dosage: 12 CYCLES FOLFOX (75% DOSE) IN COMBINATION WITH AVASTIN SINCE D. 5.
     Dates: start: 201402, end: 201408
  29. FOLIC ACID. [Suspect]
     Active Substance: FOLIC ACID
     Dosage: CYCLE 5
     Dates: start: 20091013

REACTIONS (4)
  - Second primary malignancy [Not Recovered/Not Resolved]
  - Acute lymphocytic leukaemia [Not Recovered/Not Resolved]
  - Disease progression [Recovering/Resolving]
  - Rectal adenocarcinoma [Recovering/Resolving]

NARRATIVE: CASE EVENT DATE: 201507
